FAERS Safety Report 18968861 (Version 1)
Quarter: 2021Q1

REPORT INFORMATION
  Report Type: Spontaneous
  Country: US (occurrence: US)
  Receive Date: 20210304
  Receipt Date: 20210304
  Transmission Date: 20210420
  Serious: Yes (Death, Hospitalization)
  Sender: FDA-Public Use
  Company Number: None

PATIENT
  Age: 62 Year
  Sex: Female

DRUGS (1)
  1. TISAGENLECLEUCEL. [Suspect]
     Active Substance: TISAGENLECLEUCEL
     Indication: DIFFUSE LARGE B-CELL LYMPHOMA
     Dosage: ?          OTHER FREQUENCY:ONCE;?
     Route: 041
     Dates: start: 20200619, end: 20200619

REACTIONS (5)
  - Cytokine release syndrome [None]
  - Lymphocyte adoptive therapy [None]
  - Hypotension [None]
  - Hypoxia [None]
  - Neurotoxicity [None]

NARRATIVE: CASE EVENT DATE: 20200718
